FAERS Safety Report 8835190 (Version 1)
Quarter: 2012Q4

REPORT INFORMATION
  Report Type: 
  Country: IT (occurrence: FR)
  Receive Date: 20121011
  Receipt Date: 20121011
  Transmission Date: 20130627
  Serious: Yes (Hospitalization)
  Sender: FDA-Public Use
  Company Number: FR-FRI-1000039317

PATIENT
  Age: 53 Year
  Sex: Male

DRUGS (10)
  1. NEBIVOLOL [Suspect]
     Indication: HYPERTENSION
     Dosage: 2.5 mg
     Route: 048
  2. ISOPTINE [Suspect]
     Indication: HYPERTENSION
     Dosage: 120 mg
     Route: 048
     Dates: end: 20120627
  3. FUROSEMIDE [Suspect]
     Indication: HYPERTENSION
     Dosage: 50mg 20 mg
     Route: 048
  4. COZAAR [Suspect]
     Indication: HYPERTENSION
     Dosage: 100 mg
     Route: 048
  5. KARDEGIC [Suspect]
     Indication: THROMBOSIS PROPHYLAXIS
     Dosage: 160 mg
     Route: 048
  6. SEROPLEX [Suspect]
     Indication: DEPRESSION
     Dosage: 20 mg
     Route: 048
  7. METFORMIN [Concomitant]
     Indication: TYPE 2 DIABETES MELLITUS
     Route: 048
  8. SYMBICORT [Concomitant]
     Route: 055
  9. ALLOPURINOL [Concomitant]
     Route: 048
  10. ATARAX [Concomitant]

REACTIONS (5)
  - Dizziness [Recovered/Resolved]
  - Balance disorder [Recovered/Resolved]
  - Bradycardia [Recovered/Resolved]
  - Visual impairment [Recovered/Resolved]
  - Lung disorder [Recovered/Resolved]
